FAERS Safety Report 6768167-8 (Version None)
Quarter: 2010Q2

REPORT INFORMATION
  Report Type: 
  Country: None (occurrence: None)
  Receive Date: 20100610
  Receipt Date: 20100603
  Transmission Date: 20101027
  Serious: Yes (Life-Threatening, Hospitalization)
  Sender: FDA-Public Use
  Company Number: 606512

PATIENT
  Age: 65 Year
  Sex: Female
  Weight: 70 kg

DRUGS (5)
  1. PACLITAXEL [Suspect]
     Indication: OVARIAN CANCER
     Dosage: 312 MG MILLIGRAM(S), INTRAVENOUS
     Route: 042
     Dates: start: 20100512, end: 20100512
  2. PACLITAXEL [Suspect]
     Indication: OVARIAN CANCER
     Dosage: 312 MG MILLIGRAM(S), INTRAVENOUS
     Route: 042
     Dates: start: 20100512, end: 20100512
  3. CARBOPLATIN [Suspect]
     Indication: OVARIAN CANCER
     Dosage: 590 MG MILLIGRAM(S), INTRAVENOUS
     Route: 042
     Dates: start: 20100512, end: 20100512
  4. GRANISETRON [Concomitant]
  5. (DEXAMETHASONE) [Concomitant]

REACTIONS (3)
  - CARDIO-RESPIRATORY ARREST [None]
  - HYPERSENSITIVITY [None]
  - HYPOXIA [None]
